FAERS Safety Report 24294364 (Version 1)
Quarter: 2024Q3

REPORT INFORMATION
  Report Type: Report from Study
  Country: US (occurrence: US)
  Receive Date: 20240906
  Receipt Date: 20240906
  Transmission Date: 20241016
  Serious: Yes (Hospitalization)
  Sender: TEVA
  Company Number: US-TEVA-2023-US-2937267

PATIENT
  Age: 35 Year
  Sex: Female

DRUGS (3)
  1. AUSTEDO XR [Suspect]
     Active Substance: DEUTETRABENAZINE
     Indication: Tardive dyskinesia
     Dosage: AT BEDTIME
     Route: 048
     Dates: start: 20230920
  2. AUSTEDO XR [Suspect]
     Active Substance: DEUTETRABENAZINE
     Indication: Tardive dyskinesia
     Route: 048
     Dates: start: 20240528
  3. BUSPAR [Concomitant]
     Active Substance: BUSPIRONE HYDROCHLORIDE
     Indication: Product used for unknown indication
     Route: 065

REACTIONS (7)
  - Suicidal ideation [Unknown]
  - Fatigue [Unknown]
  - Irritability [Unknown]
  - Insurance issue [Unknown]
  - Memory impairment [Unknown]
  - Intentional dose omission [Unknown]
  - Depression [Unknown]

NARRATIVE: CASE EVENT DATE: 20230101
